FAERS Safety Report 9920874 (Version 1)
Quarter: 2014Q1

REPORT INFORMATION
  Report Type: Report from Study
  Country: FR (occurrence: FR)
  Receive Date: 20140225
  Receipt Date: 20140225
  Transmission Date: 20141002
  Serious: Yes (Hospitalization)
  Sender: FDA-Public Use
  Company Number: FR-ROCHE-1350071

PATIENT
  Sex: Female

DRUGS (15)
  1. RITUXIMAB [Suspect]
     Indication: RHEUMATOID ARTHRITIS
     Dosage: DAY 1
     Route: 065
     Dates: start: 20080124
  2. RITUXIMAB [Suspect]
     Dosage: DAY 15
     Route: 065
     Dates: start: 20080207
  3. RITUXIMAB [Suspect]
     Dosage: DAY 1
     Route: 065
     Dates: start: 20090410
  4. RITUXIMAB [Suspect]
     Dosage: DAY 15
     Route: 065
     Dates: start: 20090428
  5. RITUXIMAB [Suspect]
     Dosage: DAY 1
     Route: 065
     Dates: start: 20091120
  6. RITUXIMAB [Suspect]
     Dosage: DAY 15
     Route: 065
     Dates: start: 20091209
  7. RITUXIMAB [Suspect]
     Route: 065
     Dates: start: 20100521, end: 20101122
  8. ABATACEPT [Suspect]
     Indication: RHEUMATOID ARTHRITIS
     Route: 065
     Dates: start: 2011
  9. BACTRIM [Suspect]
     Indication: PRODUCT USED FOR UNKNOWN INDICATION
     Route: 065
  10. LEFLUNOMIDE [Concomitant]
     Dosage: DAILY
     Route: 065
  11. REMICADE [Concomitant]
  12. ENBREL [Concomitant]
  13. CORTANCYL [Concomitant]
     Dosage: DAILY
     Route: 065
  14. CORTANCYL [Concomitant]
     Dosage: DAILY
     Route: 065
  15. CORTANCYL [Concomitant]
     Dosage: DAILY
     Route: 065

REACTIONS (14)
  - Joint effusion [Recovered/Resolved]
  - Large intestine polyp [Recovered/Resolved]
  - Cough [Recovered/Resolved]
  - Hypogammaglobulinaemia [Not Recovered/Not Resolved]
  - Bronchitis [Recovered/Resolved]
  - Respiratory tract infection viral [Recovered/Resolved]
  - Sciatica [Not Recovered/Not Resolved]
  - Rotator cuff syndrome [Not Recovered/Not Resolved]
  - Nasopharyngitis [Recovered/Resolved]
  - Infusion related reaction [Recovered/Resolved]
  - Paraesthesia [Recovered/Resolved]
  - Oedema [Recovered/Resolved]
  - Drug hypersensitivity [Recovered/Resolved]
  - Fall [Unknown]
